FAERS Safety Report 5399840-4 (Version None)
Quarter: 2007Q3

REPORT INFORMATION
  Report Type: 
  Country: None (occurrence: None)
  Receive Date: 20070730
  Receipt Date: 20070725
  Transmission Date: 20080115
  Serious: Yes (Life-Threatening, Hospitalization)
  Sender: FDA-Public Use
  Company Number: PHEH2007US10405

PATIENT
  Age: 50 Year
  Sex: Female
  Weight: 83.9 kg

DRUGS (4)
  1. ASPIRIN [Concomitant]
  2. TOPROL-XL [Concomitant]
  3. CLONAZEPAM [Concomitant]
  4. EXJADE [Suspect]
     Indication: IRON OVERLOAD
     Dosage: 20 MG/KG, QD
     Route: 048
     Dates: start: 20070718

REACTIONS (2)
  - COMA [None]
  - HEPATIC ENCEPHALOPATHY [None]
